FAERS Safety Report 7451237-9 (Version None)
Quarter: 2011Q2

REPORT INFORMATION
  Report Type: 
  Country: None (occurrence: None)
  Receive Date: 20110502
  Receipt Date: 20110421
  Transmission Date: 20111010
  Serious: Yes (Other)
  Sender: FDA-Public Use
  Company Number: PHHY2011US34144

PATIENT
  Sex: Female

DRUGS (4)
  1. VIVELLE-DOT [Suspect]
     Dosage: 0.0375 MG
     Route: 062
  2. OXYCODONE HCL AND ACETAMINOPHEN [Concomitant]
     Dosage: UNK
  3. BIRTH CONTROL PILL [Concomitant]
     Indication: HAEMORRHAGE
     Dosage: UNK
  4. CIPRO [Concomitant]
     Indication: HAEMORRHAGE
     Dosage: UNK

REACTIONS (5)
  - LIGAMENT DISORDER [None]
  - TENDONITIS [None]
  - BURSITIS [None]
  - JOINT INJURY [None]
  - CRYING [None]
